FAERS Safety Report 12759839 (Version 5)
Quarter: 2019Q1

REPORT INFORMATION
  Report Type: Spontaneous
  Country: AU (occurrence: AU)
  Receive Date: 20160919
  Receipt Date: 20190318
  Transmission Date: 20190417
  Serious: Yes (Life-Threatening, Hospitalization, Other)
  Sender: FDA-Public Use
  Company Number: AU-ALEXION PHARMACEUTICALS INC.-A201606935

PATIENT
  Age: 3 Year
  Sex: Male
  Weight: 11.35 kg

DRUGS (9)
  1. STRENSIQ [Suspect]
     Active Substance: ASFOTASE ALFA
     Dosage: 2 MG, TIW
     Route: 058
     Dates: start: 20160505
  2. STRENSIQ [Suspect]
     Active Substance: ASFOTASE ALFA
     Dosage: 3 MG/KG, TIW
     Route: 065
     Dates: start: 201712
  3. STRENSIQ [Suspect]
     Active Substance: ASFOTASE ALFA
     Indication: HYPOPHOSPHATASIA
     Dosage: 18 MG, TIW
     Route: 058
  4. STRENSIQ [Suspect]
     Active Substance: ASFOTASE ALFA
     Dosage: 36 MG, QIW
     Route: 058
     Dates: start: 201806
  5. STRENSIQ [Suspect]
     Active Substance: ASFOTASE ALFA
     Dosage: 2 MG/KG, TIW
     Route: 058
     Dates: start: 201502
  6. STRENSIQ [Suspect]
     Active Substance: ASFOTASE ALFA
     Dosage: 3 MG/KG, TIW
     Route: 058
     Dates: start: 20171115
  7. STRENSIQ [Suspect]
     Active Substance: ASFOTASE ALFA
     Dosage: 2 MG/KG, TIW
     Route: 058
     Dates: start: 20141221
  8. AZITHROMYCIN ANHYDROUS. [Concomitant]
     Active Substance: AZITHROMYCIN ANHYDROUS
     Indication: PRODUCT USED FOR UNKNOWN INDICATION
     Dosage: 200/5, MG/ML, TIW
     Route: 048
  9. STRENSIQ [Suspect]
     Active Substance: ASFOTASE ALFA
     Dosage: 2 MG/KG, TIW
     Route: 058
     Dates: start: 20141220

REACTIONS (26)
  - Respiratory distress [Recovering/Resolving]
  - Growth retardation [Unknown]
  - Cough [Unknown]
  - Metaphyseal dysplasia [Unknown]
  - Dysplasia [Unknown]
  - Bone pain [Unknown]
  - Bone density decreased [Unknown]
  - Respiratory tract infection [Unknown]
  - Scoliosis [Unknown]
  - Bronchiolitis [Recovered/Resolved]
  - Femur fracture [Recovering/Resolving]
  - Craniosynostosis [Recovered/Resolved]
  - Spinal deformity [Unknown]
  - Dependence on respirator [Unknown]
  - Condition aggravated [Unknown]
  - Human metapneumovirus test positive [Unknown]
  - Incorrect dose administered [Not Recovered/Not Resolved]
  - Kyphosis [Unknown]
  - Growth failure [Unknown]
  - Tibia fracture [Recovering/Resolving]
  - Osteomalacia [Unknown]
  - Motor developmental delay [Unknown]
  - Rickets [Not Recovered/Not Resolved]
  - Blood alkaline phosphatase increased [Unknown]
  - Congenital bowing of long bones [Unknown]
  - Blood phosphorus increased [Unknown]

NARRATIVE: CASE EVENT DATE: 20140502
